FAERS Safety Report 4907160-4 (Version None)
Quarter: 2006Q1

REPORT INFORMATION
  Report Type: 
  Country: None (occurrence: None)
  Receive Date: 20060206
  Receipt Date: 20060122
  Transmission Date: 20060701
  Serious: Yes (Hospitalization, Other)
  Sender: FDA-Public Use
  Company Number: HQWYE497924JAN06

PATIENT
  Age: 72 Year
  Sex: Male

DRUGS (14)
  1. LORAZEPAM [Suspect]
     Indication: SLEEP DISORDER
     Dosage: SEE IMAGE
     Route: 048
     Dates: start: 20051205, end: 20051205
  2. LORAZEPAM [Suspect]
     Indication: SLEEP DISORDER
     Dosage: SEE IMAGE
     Route: 048
     Dates: start: 20051206, end: 20051206
  3. LORAZEPAM [Suspect]
     Indication: SLEEP DISORDER
     Dosage: SEE IMAGE
     Route: 048
     Dates: start: 20051207, end: 20051208
  4. LORAZEPAM [Suspect]
     Indication: SLEEP DISORDER
     Dosage: SEE IMAGE
     Route: 048
     Dates: start: 20051209, end: 20051209
  5. LORAZEPAM [Suspect]
     Indication: SLEEP DISORDER
     Dosage: SEE IMAGE
     Route: 048
     Dates: start: 20051213, end: 20051213
  6. LORAZEPAM [Suspect]
     Indication: SLEEP DISORDER
     Dosage: SEE IMAGE
     Route: 048
     Dates: start: 20051214, end: 20051215
  7. LORAZEPAM [Suspect]
     Indication: SLEEP DISORDER
     Dosage: SEE IMAGE
     Route: 048
     Dates: start: 20051216
  8. DOMINAL (PROTHIPENDYL HYDROCHLORIDE, ) [Suspect]
     Dosage: SEE IMAGE
     Route: 065
     Dates: start: 20051207, end: 20051201
  9. DOMINAL (PROTHIPENDYL HYDROCHLORIDE, ) [Suspect]
     Dosage: SEE IMAGE
     Route: 065
     Dates: start: 20051209, end: 20051211
  10. DOMINAL (PROTHIPENDYL HYDROCHLORIDE, ) [Suspect]
     Dosage: SEE IMAGE
     Route: 065
     Dates: start: 20051213
  11. VENLAFAXINE HCL [Suspect]
     Dosage: SEE IMAGE
     Route: 065
     Dates: start: 20051207, end: 20051201
  12. VENLAFAXINE HCL [Suspect]
     Dosage: SEE IMAGE
     Route: 065
     Dates: start: 20051206, end: 20051206
  13. VENLAFAXINE HCL [Suspect]
     Dosage: SEE IMAGE
     Route: 065
     Dates: start: 20051213, end: 20051215
  14. VENLAFAXINE HCL [Suspect]
     Dosage: SEE IMAGE
     Route: 065
     Dates: start: 20051216

REACTIONS (7)
  - CIRCULATORY COLLAPSE [None]
  - CONCUSSION [None]
  - DIZZINESS [None]
  - FALL [None]
  - HEAD INJURY [None]
  - HEADACHE [None]
  - HYPOTENSION [None]
